FAERS Safety Report 8459066-4 (Version None)
Quarter: 2012Q2

REPORT INFORMATION
  Report Type: 
  Country: None (occurrence: None)
  Receive Date: 20120618
  Receipt Date: 20120531
  Transmission Date: 20120825
  Serious: Yes (Hospitalization)
  Sender: FDA-Public Use
  Company Number: FK201201594

PATIENT
  Age: 70 Year
  Sex: Male
  Weight: 83.8 kg

DRUGS (13)
  1. NIASPAN [Concomitant]
  2. HYDROCHLOROTHIAZIDE [Concomitant]
  3. METFFORMIN HYDROCHLORIDE [Concomitant]
  4. POTASSIUM CHLORIDE [Concomitant]
  5. AXITINIB (AXITINIB) [Suspect]
     Indication: METASTATIC MALIGNANT MELANOMA
  6. CARBOPLATIN [Suspect]
     Indication: METASTATIC MALIGNANT MELANOMA
     Dates: start: 20120125
  7. AMLODIPINE [Concomitant]
  8. LISINOPRIL [Concomitant]
  9. ASPIRIN [Concomitant]
  10. GLIPIZIDE [Concomitant]
  11. METOPROLOL TARTRATE [Concomitant]
  12. PACLITAXEL [Suspect]
     Indication: METASTATIC MALIGNANT MELANOMA
  13. MIRALAX [Concomitant]

REACTIONS (3)
  - ATAXIA [None]
  - BLOOD CREATININE INCREASED [None]
  - DYSPNOEA EXERTIONAL [None]
